FAERS Safety Report 21352260 (Version 3)
Quarter: 2022Q4

REPORT INFORMATION
  Report Type: Report from Study
  Country: CA (occurrence: CA)
  Receive Date: 20220920
  Receipt Date: 20221203
  Transmission Date: 20230113
  Serious: Yes (Other)
  Sender: FDA-Public Use
  Company Number: CA-NOVARTISPH-NVSC2022CA170339

PATIENT
  Sex: Male

DRUGS (1)
  1. HYRIMOZ [Suspect]
     Active Substance: ADALIMUMAB-ADAZ
     Indication: Rheumatoid arthritis
     Dosage: 40 MG (FORMULATION: PRE-FILLED PEN)
     Route: 058
     Dates: start: 20211004

REACTIONS (4)
  - Crohn^s disease [Unknown]
  - Swollen joint count increased [Not Recovered/Not Resolved]
  - Tender joint count increased [Recovering/Resolving]
  - Drug ineffective [Unknown]
